FAERS Safety Report 5228547-9 (Version None)
Quarter: 2007Q1

REPORT INFORMATION
  Report Type: 
  Country: None (occurrence: None)
  Receive Date: 20070205
  Receipt Date: 20070123
  Transmission Date: 20070707
  Serious: Yes (Death)
  Sender: FDA-Public Use
  Company Number: US-PURDUE-USA_2007_0026293

PATIENT
  Age: 33 Year
  Sex: Female
  Weight: 45 kg

DRUGS (5)
  1. OXYCODONE HCL [Suspect]
     Indication: DRUG ABUSER
     Dosage: UNK, SEE TEXT
  2. COCAINE [Suspect]
     Indication: DRUG ABUSER
     Dosage: UNK, SEE TEXT
  3. CHLORDIAZEPOXIDE [Suspect]
     Indication: DRUG ABUSER
     Dosage: UNK, SEE TEXT
  4. BENZODIAZEPINE DERIVATIVES [Suspect]
     Indication: DRUG ABUSER
     Dosage: UNK, SEE TEXT
  5. OPIOIDS [Suspect]
     Indication: DRUG ABUSER
     Dosage: UNK, SEE TEXT

REACTIONS (3)
  - ARTERIOSCLEROSIS CORONARY ARTERY [None]
  - DRUG TOXICITY [None]
  - SUBSTANCE ABUSE [None]
